FAERS Safety Report 24586469 (Version 2)
Quarter: 2024Q4

REPORT INFORMATION
  Report Type: Report from Study
  Country: US (occurrence: US)
  Receive Date: 20241106
  Receipt Date: 20241218
  Transmission Date: 20250114
  Serious: Yes (Hospitalization)
  Sender: ABBVIE
  Company Number: US-ABBVIE-5987871

PATIENT
  Age: 57 Year
  Sex: Female

DRUGS (2)
  1. RINVOQ [Suspect]
     Active Substance: UPADACITINIB
     Indication: Rheumatoid arthritis
     Dosage: FORM STRENGTH: 15 MG?LAST ADMIN DATE: 2024
     Route: 048
     Dates: start: 20240509
  2. RINVOQ [Suspect]
     Active Substance: UPADACITINIB
     Indication: Rheumatoid arthritis
     Dosage: FORM STRENGTH: 15 MG?FIRST ADMIN DATE: 2024
     Route: 048

REACTIONS (4)
  - Arthritis [Recovering/Resolving]
  - Pain in extremity [Unknown]
  - Therapeutic product effect delayed [Unknown]
  - Pain [Unknown]

NARRATIVE: CASE EVENT DATE: 20240101
